FAERS Safety Report 7339488-5 (Version None)
Quarter: 2011Q1

REPORT INFORMATION
  Report Type: 
  Country: None (occurrence: None)
  Receive Date: 20110308
  Receipt Date: 20110111
  Transmission Date: 20110831
  Serious: No
  Sender: FDA-Public Use
  Company Number: US-AMGEN-USASP2011001739

PATIENT
  Sex: Female
  Weight: 38.6 kg

DRUGS (10)
  1. LIPITOR [Concomitant]
  2. SINGULAIR [Concomitant]
  3. TYLENOL (CAPLET) [Concomitant]
  4. THEOPHYLLINE [Concomitant]
  5. ALBUTEROL [Concomitant]
  6. VIT D [Concomitant]
  7. CALCIUM [Concomitant]
  8. CHLORPHENIRAMINE MALEATE [Concomitant]
  9. PROLIA [Suspect]
     Indication: OSTEOPOROSIS POSTMENOPAUSAL
     Dosage: 60 MG, Q6MO
     Dates: start: 20101217
  10. QVAR 40 [Concomitant]

REACTIONS (3)
  - MALAISE [None]
  - DYSGEUSIA [None]
  - BLOOD PRESSURE INCREASED [None]
